FAERS Safety Report 10181783 (Version 1)
Quarter: 2014Q2

REPORT INFORMATION
  Report Type: Spontaneous
  Country: US (occurrence: US)
  Receive Date: 20140519
  Receipt Date: 20140519
  Transmission Date: 20141212
  Serious: Yes (Hospitalization, Other)
  Sender: FDA-Public Use
  Company Number: US-TEVA-481745USA

PATIENT
  Age: 71 Year
  Sex: Female

DRUGS (2)
  1. BUPROPION [Suspect]
     Indication: SUICIDE ATTEMPT
     Dosage: BUPROPION XL TABLETS (DOSAGE UNKNOWN)
     Route: 048
  2. LAMOTRIGINE [Suspect]
     Indication: SUICIDE ATTEMPT
     Dosage: (DOSAGE UNKNOWN)
     Route: 048

REACTIONS (4)
  - Status epilepticus [Recovered/Resolved]
  - Electrocardiogram QT prolonged [Unknown]
  - Intentional overdose [Recovered/Resolved]
  - Suicide attempt [Recovered/Resolved]
